FAERS Safety Report 24790713 (Version 1)
Quarter: 2024Q4

REPORT INFORMATION
  Report Type: Spontaneous
  Country: JP (occurrence: JP)
  Receive Date: 20241230
  Receipt Date: 20241230
  Transmission Date: 20250115
  Serious: Yes (Hospitalization)
  Sender: MYLAN
  Company Number: JP-MYLANLABS-2024M1117422

PATIENT
  Age: 61 Year
  Sex: Female

DRUGS (7)
  1. OLANZAPINE [Suspect]
     Active Substance: OLANZAPINE
     Indication: Schizophrenia
     Dosage: 10 MILLIGRAM
     Route: 065
  2. HALOPERIDOL [Suspect]
     Active Substance: HALOPERIDOL
     Indication: Schizophrenia
     Dosage: 9 MILLIGRAM
     Route: 065
  3. RISPERIDONE [Suspect]
     Active Substance: RISPERIDONE
     Indication: Schizophrenia
     Dosage: 3 MILLIGRAM
     Route: 065
  4. CHLORPROMAZINE [Suspect]
     Active Substance: CHLORPROMAZINE
     Indication: Schizophrenia
     Dosage: 100 MILLIGRAM
     Route: 065
  5. LEVOMEPROMAZINE [Suspect]
     Active Substance: LEVOMEPROMAZINE
     Indication: Schizophrenia
     Dosage: 50 MILLIGRAM
     Route: 065
  6. CLONAZEPAM [Suspect]
     Active Substance: CLONAZEPAM
     Indication: Schizophrenia
     Dosage: 3 MILLIGRAM
     Route: 065
  7. CARBAMAZEPINE [Suspect]
     Active Substance: CARBAMAZEPINE
     Indication: Schizophrenia
     Dosage: 600 MILLIGRAM
     Route: 065

REACTIONS (1)
  - Drug ineffective [Unknown]
